FAERS Safety Report 19083594 (Version 1)
Quarter: 2021Q2

REPORT INFORMATION
  Report Type: Spontaneous
  Country: IT (occurrence: IT)
  Receive Date: 20210401
  Receipt Date: 20210401
  Transmission Date: 20210717
  Serious: Yes (Hospitalization)
  Sender: FDA-Public Use
  Company Number: IT-MYLANLABS-2021M1019608

PATIENT
  Age: 60 Year

DRUGS (3)
  1. TRANEXAMIC ACID. [Suspect]
     Active Substance: TRANEXAMIC ACID
     Indication: PROPHYLAXIS
     Dosage: 10 MILLIGRAM/KILOGRAM ONE HOUR BEFORE THE SURGERY
     Route: 042
     Dates: start: 20190607
  2. TRANEXAMIC ACID. [Suspect]
     Active Substance: TRANEXAMIC ACID
     Dosage: 10 MILLIGRAM/KILOGRAM, Q4H INTRAOPERATIVELY
     Route: 042
     Dates: start: 20190607
  3. TRANEXAMIC ACID. [Suspect]
     Active Substance: TRANEXAMIC ACID
     Dosage: 10 MILLIGRAM/KILOGRAM FIRST 24H POST SURGERY
     Route: 042
     Dates: start: 20190608

REACTIONS (1)
  - Drug ineffective [Unknown]

NARRATIVE: CASE EVENT DATE: 20190607
